FAERS Safety Report 17388093 (Version 3)
Quarter: 2020Q2

REPORT INFORMATION
  Report Type: Report from Study
  Country: US (occurrence: US)
  Receive Date: 20200206
  Receipt Date: 20200413
  Transmission Date: 20200713
  Serious: Yes (Hospitalization)
  Sender: FDA-Public Use
  Company Number: NVSC2020US031064

PATIENT
  Age: 11 Year
  Sex: Female
  Weight: 37.4 kg

DRUGS (9)
  1. MONTELUKAST [Concomitant]
     Active Substance: MONTELUKAST SODIUM
     Indication: RHINITIS ALLERGIC
     Dosage: 5 MILLIGRAM, HS
     Route: 048
     Dates: start: 20141128, end: 20200123
  2. AZITHROMYCIN ANHYDROUS. [Concomitant]
     Active Substance: AZITHROMYCIN ANHYDROUS
     Indication: PSEUDOMONAS INFECTION
     Dosage: 250 MILLIGRAM, 3XW ( (M-W-F))
     Route: 048
     Dates: start: 20161221, end: 20200123
  3. FLUTICASONE. [Concomitant]
     Active Substance: FLUTICASONE
     Indication: ASTHMA
     Dosage: 2 PUFFS, BID
     Route: 065
     Dates: start: 20190104, end: 20200123
  4. ALBUTEROL. [Concomitant]
     Active Substance: ALBUTEROL
     Indication: CYSTIC FIBROSIS LUNG
     Dosage: 2 PUFFS, BID-QID
     Route: 065
     Dates: start: 20090624, end: 20200124
  5. PULMOZYME [Concomitant]
     Active Substance: DORNASE ALFA
     Indication: CYSTIC FIBROSIS LUNG
     Dosage: 2.5 MILLIGRAM, QD
     Route: 065
     Dates: start: 20090624, end: 20200123
  6. PULMOSAL [Concomitant]
     Active Substance: SODIUM CHLORIDE
     Indication: RESPIRATORY TRACT CONGESTION
     Dosage: 4 MILLILITER (BID-QID)
     Route: 065
     Dates: start: 20160927, end: 20200123
  7. CETRIZINE [Concomitant]
     Active Substance: CETIRIZINE HYDROCHLORIDE
     Indication: HYPERSENSITIVITY
     Dosage: 5 MILLIGRAM, QD
     Route: 048
     Dates: start: 20180510
  8. TOBRAMYCIN. [Suspect]
     Active Substance: TOBRAMYCIN
     Indication: CYSTIC FIBROSIS
     Dosage: 112 MG, BID
     Route: 055
     Dates: start: 20141130
  9. FLONASE [Concomitant]
     Active Substance: FLUTICASONE PROPIONATE
     Indication: HYPERSENSITIVITY
     Dosage: 2PUFFS, BID
     Route: 065
     Dates: start: 20180807, end: 20200123

REACTIONS (1)
  - Infective pulmonary exacerbation of cystic fibrosis [Recovered/Resolved]

NARRATIVE: CASE EVENT DATE: 20191129
